FAERS Safety Report 7960282-6 (Version None)
Quarter: 2011Q4

REPORT INFORMATION
  Report Type: 
  Country: None (occurrence: None)
  Receive Date: 20111206
  Receipt Date: 20111122
  Transmission Date: 20120403
  Serious: Yes (Hospitalization)
  Sender: FDA-Public Use
  Company Number: FR-CELGENEUS-056-21880-11113248

PATIENT
  Sex: Male

DRUGS (20)
  1. REVLIMID [Suspect]
     Indication: MULTIPLE MYELOMA
     Dosage: 25 MILLIGRAM
     Route: 048
     Dates: start: 20111025
  2. BORTEZOMIB [Suspect]
     Indication: MULTIPLE MYELOMA
     Dosage: 1.3 MILLIGRAM/SQ. METER
     Route: 065
     Dates: start: 20111025
  3. DEXAMETHASONE [Suspect]
     Indication: MULTIPLE MYELOMA
     Dosage: 20 MILLIGRAM
     Route: 065
     Dates: start: 20111025
  4. BORTEZOMIB [Suspect]
     Dosage: 1.3 MILLIGRAM/SQ. METER
     Route: 065
     Dates: start: 20111104
  5. VALACYCLOVIR HYDROCHLORIDE [Concomitant]
     Route: 048
  6. POLYETHYLENE GLYCOL [Concomitant]
     Indication: CONSTIPATION
     Route: 065
  7. REVLIMID [Suspect]
     Dosage: 25 MILLIGRAM
     Route: 048
     Dates: start: 20111107
  8. METOPROLOL TARTRATE [Concomitant]
     Indication: HYPERTENSION
     Route: 048
  9. ACUPAN [Concomitant]
     Route: 065
  10. DEXAMETHASONE [Suspect]
     Dosage: 20 MILLIGRAM
     Route: 065
     Dates: start: 20111105
  11. AMOXICILLIN TRIHYDRATE [Concomitant]
     Route: 048
  12. HYDROCORTISONE [Concomitant]
     Dosage: 10 MICROGRAM
     Route: 048
  13. NEXIUM [Concomitant]
     Route: 065
  14. LAMICTAL [Concomitant]
     Route: 065
  15. LOVENOX [Concomitant]
     Indication: THROMBOSIS
     Route: 065
     Dates: start: 20111102
  16. BACTRIM [Concomitant]
     Indication: PROPHYLAXIS
     Route: 048
  17. ATORVASTATIN CALCIUM [Concomitant]
     Dosage: 1
     Route: 048
  18. LEVOTHYROXINE SODIUM [Concomitant]
     Indication: HYPOTHYROIDISM
     Dosage: 100 MICROGRAM
     Route: 048
  19. POTASSIUM CHLORIDE [Concomitant]
     Route: 065
  20. BICARBONATE [Concomitant]
     Route: 065

REACTIONS (1)
  - LUNG DISORDER [None]
